FAERS Safety Report 6391529-8 (Version None)
Quarter: 2009Q4

REPORT INFORMATION
  Report Type: 
  Country: None (occurrence: None)
  Receive Date: 20091006
  Receipt Date: 20091006
  Transmission Date: 20100525
  Serious: Yes (Other)
  Sender: FDA-Public Use
  Company Number: None

PATIENT
  Age: 59 Year
  Sex: Female
  Weight: 68.0396 kg

DRUGS (1)
  1. ZYPREXA [Suspect]
     Indication: BIPOLAR DISORDER
     Dosage: 2.75 UP TO 10 MG AT TIMES ONCE AT NIGHT PO
     Route: 048
     Dates: start: 20010415, end: 20090115

REACTIONS (5)
  - DRUG INEFFECTIVE [None]
  - FIBROMYALGIA [None]
  - MUSCLE SPASMS [None]
  - PARAESTHESIA [None]
  - STRESS [None]
